FAERS Safety Report 6470136-2 (Version None)
Quarter: 2009Q4

REPORT INFORMATION
  Report Type: 
  Country: None (occurrence: None)
  Receive Date: 20091203
  Receipt Date: 20080116
  Transmission Date: 20100525
  Serious: Yes (Hospitalization)
  Sender: FDA-Public Use
  Company Number: US-ELI_LILLY_AND_COMPANY-US200712003057

PATIENT
  Sex: Male

DRUGS (14)
  1. CYMBALTA [Suspect]
     Indication: DIABETIC NEUROPATHY
     Dosage: 30 MG, 2/D
     Dates: start: 20071121, end: 20080107
  2. CYMBALTA [Suspect]
     Dosage: 30 MG, EACH EVENING
     Dates: start: 20070101
  3. TOPROL-XL [Concomitant]
     Dosage: 25 MG, DAILY (1/D)
     Dates: start: 20070101
  4. AGGRENOX [Concomitant]
  5. DEMADEX [Concomitant]
  6. INSPRA [Concomitant]
  7. ZOCOR [Concomitant]
  8. WELLBUTRIN [Concomitant]
  9. LUNESTA [Concomitant]
  10. ALLEGRA [Concomitant]
  11. ARICEPT [Concomitant]
  12. INSULIN [Concomitant]
  13. AVAPRO [Concomitant]
  14. MOBIC [Concomitant]

REACTIONS (14)
  - ABNORMAL DREAMS [None]
  - CARDIAC DISORDER [None]
  - CONVULSION [None]
  - COUGH [None]
  - DECREASED APPETITE [None]
  - DYSPNOEA [None]
  - EJECTION FRACTION DECREASED [None]
  - GASTROENTERITIS VIRAL [None]
  - HALLUCINATION [None]
  - HEART RATE DECREASED [None]
  - HYPERHIDROSIS [None]
  - MUSCLE ATROPHY [None]
  - NAUSEA [None]
  - PALPITATIONS [None]
